FAERS Safety Report 7149630-7 (Version None)
Quarter: 2010Q4

REPORT INFORMATION
  Report Type: 
  Country: None (occurrence: None)
  Receive Date: 20101209
  Receipt Date: 20101201
  Transmission Date: 20110411
  Serious: Yes (Hospitalization)
  Sender: FDA-Public Use
  Company Number: IT-ABBOTT-10P-083-0689106-00

PATIENT
  Sex: Female

DRUGS (4)
  1. KLACID [Suspect]
     Indication: PYREXIA
     Dosage: 400 MG DAILY
     Route: 048
     Dates: start: 20101111, end: 20101121
  2. CEFOTAXIMA [Suspect]
     Indication: PYREXIA
     Dosage: 2.7 MG DAILY
     Route: 042
     Dates: start: 20101115, end: 20101121
  3. CLENIL [Concomitant]
     Indication: PRODUCT USED FOR UNKNOWN INDICATION
  4. REUFLOR [Concomitant]
     Indication: PRODUCT USED FOR UNKNOWN INDICATION

REACTIONS (1)
  - ILLUSION [None]
